FAERS Safety Report 9724917 (Version 1)
Quarter: 2013Q4

REPORT INFORMATION
  Report Type: Spontaneous
  Country: US (occurrence: US)
  Receive Date: 20131202
  Receipt Date: 20131202
  Transmission Date: 20140711
  Serious: Yes (Other)
  Sender: FDA-Public Use
  Company Number: US-ENDO PHARMACEUTICALS INC.-OXYC20120069

PATIENT
  Sex: Male

DRUGS (1)
  1. OXYCODONE HCL 30MG [Suspect]
     Indication: DRUG DIVERSION
     Dosage: N/A

REACTIONS (2)
  - Drug diversion [Unknown]
  - Prescription form tampering [Unknown]
